FAERS Safety Report 5359866-3 (Version None)
Quarter: 2007Q2

REPORT INFORMATION
  Report Type: 
  Country: None (occurrence: None)
  Receive Date: 20070530
  Receipt Date: 20070123
  Transmission Date: 20071010
  Serious: No
  Sender: FDA-Public Use
  Company Number: 2007PV028866

PATIENT
  Age: 47 Year
  Sex: Male
  Weight: 172.3669 kg

DRUGS (3)
  1. BYETTA [Suspect]
     Indication: DIABETES MELLITUS NON-INSULIN-DEPENDENT
     Dosage: 5 MCG; BID; SC
     Route: 058
     Dates: start: 20061218
  2. BYETTA [Suspect]
     Indication: WEIGHT CONTROL
     Dosage: 5 MCG; BID; SC
     Route: 058
     Dates: start: 20061218
  3. GLUCOVANCE [Concomitant]

REACTIONS (1)
  - BLOOD GLUCOSE DECREASED [None]
